FAERS Safety Report 7657377 (Version 5)
Quarter: 2014Q2

REPORT INFORMATION
  Report Type: Spontaneous
  Country: US (occurrence: US)
  Receive Date: 20101105
  Receipt Date: 20140408
  Transmission Date: 20141212
  Serious: Yes (Hospitalization, Other)
  Sender: FDA-Public Use
  Company Number: US-BAYER-201039231NA

PATIENT
  Age: 18 Year
  Sex: Female
  Weight: 95 kg

DRUGS (4)
  1. YASMIN [Suspect]
     Indication: CONTRACEPTION
     Dates: start: 20030716, end: 20070927
  2. ACIPHEX [Concomitant]
     Indication: GASTROOESOPHAGEAL REFLUX DISEASE
     Dosage: UNK
     Dates: start: 200406, end: 200411
  3. NEXIUM [Concomitant]
  4. DARVOCET [Concomitant]

REACTIONS (2)
  - Cholelithiasis [None]
  - Cholecystitis chronic [None]
